FAERS Safety Report 24304707 (Version 3)
Quarter: 2025Q2

REPORT INFORMATION
  Report Type: Report from Study
  Country: US (occurrence: US)
  Receive Date: 20240910
  Receipt Date: 20250526
  Transmission Date: 20250717
  Serious: Yes (Other)
  Sender: BEIGENE
  Company Number: US-BEIGENE-BGN-2024-014299

PATIENT
  Age: 62 Year

DRUGS (16)
  1. BRUKINSA [Suspect]
     Active Substance: ZANUBRUTINIB
     Indication: Chronic lymphocytic leukaemia
     Dosage: 160 MILLIGRAM, BID
  2. BRUKINSA [Suspect]
     Active Substance: ZANUBRUTINIB
     Dosage: 160 MILLIGRAM, BID
  3. BRUKINSA [Suspect]
     Active Substance: ZANUBRUTINIB
     Dosage: 160 MILLIGRAM, BID
     Route: 048
  4. BRUKINSA [Suspect]
     Active Substance: ZANUBRUTINIB
     Dosage: 160 MILLIGRAM, BID
     Route: 048
  5. BRUKINSA [Suspect]
     Active Substance: ZANUBRUTINIB
     Route: 048
  6. BRUKINSA [Suspect]
     Active Substance: ZANUBRUTINIB
     Route: 048
  7. BRUKINSA [Suspect]
     Active Substance: ZANUBRUTINIB
  8. BRUKINSA [Suspect]
     Active Substance: ZANUBRUTINIB
  9. BRUKINSA [Suspect]
     Active Substance: ZANUBRUTINIB
     Route: 048
  10. BRUKINSA [Suspect]
     Active Substance: ZANUBRUTINIB
     Route: 048
  11. BRUKINSA [Suspect]
     Active Substance: ZANUBRUTINIB
  12. BRUKINSA [Suspect]
     Active Substance: ZANUBRUTINIB
  13. BRUKINSA [Suspect]
     Active Substance: ZANUBRUTINIB
  14. BRUKINSA [Suspect]
     Active Substance: ZANUBRUTINIB
  15. BRUKINSA [Suspect]
     Active Substance: ZANUBRUTINIB
     Route: 048
  16. BRUKINSA [Suspect]
     Active Substance: ZANUBRUTINIB
     Route: 048

REACTIONS (6)
  - Cardiac flutter [Recovered/Resolved]
  - Heart rate decreased [Recovered/Resolved]
  - Weight abnormal [Unknown]
  - Alopecia [Unknown]
  - Bradycardia [Unknown]
  - Tachycardia [Unknown]
